FAERS Safety Report 9714075 (Version 1)
Quarter: 2013Q4

REPORT INFORMATION
  Report Type: Spontaneous
  Country: US (occurrence: US)
  Receive Date: 20131126
  Receipt Date: 20131126
  Transmission Date: 20140711
  Serious: No
  Sender: FDA-Public Use
  Company Number: US-GILEAD-2008-0018833

PATIENT
  Sex: Female
  Weight: 70.31 kg

DRUGS (16)
  1. LETAIRIS [Suspect]
     Indication: PULMONARY ARTERIAL HYPERTENSION
     Route: 048
     Dates: start: 20081017
  2. OXYGEN [Concomitant]
     Route: 045
  3. REVATIO [Concomitant]
     Route: 048
  4. COUMADIN [Concomitant]
     Route: 048
  5. METOPROLOL [Concomitant]
     Route: 048
  6. ADVAIR [Concomitant]
     Route: 055
  7. BUMEX [Concomitant]
     Route: 048
  8. DIGOXIN [Concomitant]
     Route: 048
  9. ZOCOR [Concomitant]
     Route: 048
  10. MUCINEX [Concomitant]
     Route: 048
  11. SYNTHROID [Concomitant]
     Route: 048
  12. PROTONIX [Concomitant]
     Route: 048
  13. POTASSIUM CHLORIDE [Concomitant]
     Route: 048
  14. DOCUSATE SODIUM [Concomitant]
     Route: 048
  15. FERROUS SULFATE [Concomitant]
     Route: 048
  16. MULTIVITAMIN [Concomitant]
     Route: 048

REACTIONS (4)
  - Abdominal discomfort [None]
  - Diarrhoea [None]
  - Constipation [None]
  - Headache [None]
